FAERS Safety Report 6283354-3 (Version None)
Quarter: 2009Q3

REPORT INFORMATION
  Report Type: 
  Country: None (occurrence: None)
  Receive Date: 20090721
  Receipt Date: 20090721
  Transmission Date: 20100115
  Serious: Yes (Other)
  Sender: FDA-Public Use
  Company Number: None

PATIENT
  Age: 51 Year
  Sex: Male
  Weight: 83.0083 kg

DRUGS (1)
  1. AZITHROMYCIN [Suspect]
     Indication: LUNG INFECTION
     Dosage: 250MG DAY PO
     Route: 048
     Dates: start: 20090710, end: 20090714

REACTIONS (1)
  - TINNITUS [None]
